FAERS Safety Report 14436687 (Version 1)
Quarter: 2018Q1

REPORT INFORMATION
  Report Type: Spontaneous
  Country: US (occurrence: US)
  Receive Date: 20180124
  Receipt Date: 20180124
  Transmission Date: 20180509
  Serious: Yes (Hospitalization)
  Sender: FDA-Public Use
  Company Number: None

PATIENT
  Age: 34 Year
  Sex: Male

DRUGS (1)
  1. TRIAMCINOLONE [Suspect]
     Active Substance: TRIAMCINOLONE
     Indication: PAIN
     Dates: start: 20171020, end: 20171020

REACTIONS (4)
  - Mania [None]
  - Pica [None]
  - Sleep disorder [None]
  - Partner stress [None]

NARRATIVE: CASE EVENT DATE: 20171026
